FAERS Safety Report 19403458 (Version 2)
Quarter: 2021Q3

REPORT INFORMATION
  Report Type: Other
  Country: AU (occurrence: AU)
  Receive Date: 20210611
  Receipt Date: 20210701
  Transmission Date: 20211014
  Serious: Yes (Death)
  Sender: FDA-Public Use
  Company Number: AU-ROCHE-2845748

PATIENT
  Sex: Female

DRUGS (4)
  1. POLATUZUMAB VEDOTIN. [Suspect]
     Active Substance: POLATUZUMAB VEDOTIN
     Indication: NON-HODGKIN^S LYMPHOMA REFRACTORY
     Route: 042
     Dates: start: 20191015, end: 20200403
  2. RITUXIMAB. [Suspect]
     Active Substance: RITUXIMAB
     Indication: NON-HODGKIN^S LYMPHOMA REFRACTORY
     Route: 042
     Dates: start: 20191015, end: 20200918
  3. BENDAMUSTINE [Concomitant]
     Active Substance: BENDAMUSTINE
     Route: 042
     Dates: start: 20191015, end: 20191204
  4. PREDNISOLONE. [Concomitant]
     Active Substance: PREDNISOLONE

REACTIONS (2)
  - Progressive multifocal leukoencephalopathy [Fatal]
  - Neurological decompensation [Fatal]
